FAERS Safety Report 15469817 (Version 1)
Quarter: 2018Q4

REPORT INFORMATION
  Report Type: Spontaneous
  Country: US (occurrence: US)
  Receive Date: 20181005
  Receipt Date: 20181005
  Transmission Date: 20190205
  Serious: No
  Sender: FDA-Public Use
  Company Number: US-BAYER-2018-185892

PATIENT
  Age: 54 Year
  Sex: Female
  Weight: 58.96 kg

DRUGS (4)
  1. ALEVE PM [Suspect]
     Active Substance: DIPHENHYDRAMINE HYDROCHLORIDE\NAPROXEN SODIUM
     Indication: INSOMNIA
     Dosage: 2 DF, UNK
     Route: 048
     Dates: end: 20181003
  2. KLONOPIN [Concomitant]
     Active Substance: CLONAZEPAM
  3. METHADONE [Concomitant]
     Active Substance: METHADONE HYDROCHLORIDE
     Indication: DEPENDENCE
  4. MELATONIN [Concomitant]
     Active Substance: MELATONIN
     Indication: INSOMNIA

REACTIONS (3)
  - Contraindicated product administered [Unknown]
  - Drug effect decreased [Unknown]
  - Product use in unapproved indication [Unknown]
